FAERS Safety Report 9267438 (Version 1)
Quarter: 2013Q2

REPORT INFORMATION
  Report Type: Spontaneous
  Country: GR (occurrence: GR)
  Receive Date: 20130502
  Receipt Date: 20130502
  Transmission Date: 20140414
  Serious: Yes (Other)
  Sender: FDA-Public Use
  Company Number: GR-PFIZER INC-2013132441

PATIENT
  Age: 72 Year
  Sex: Male

DRUGS (3)
  1. PIPERACILLIN/TAZOBACTAM [Suspect]
     Indication: PYREXIA
  2. CLINDAMYCIN PHOSPHATE [Suspect]
     Indication: PYREXIA
  3. CIPROFLOXACIN LACTATE [Suspect]
     Indication: PYREXIA

REACTIONS (2)
  - Arthritis bacterial [Unknown]
  - Drug ineffective [Recovered/Resolved]
